FAERS Safety Report 9009920 (Version 1)
Quarter: 2013Q1

REPORT INFORMATION
  Report Type: Spontaneous
  Country: US (occurrence: US)
  Receive Date: 20130112
  Receipt Date: 20130112
  Transmission Date: 20140127
  Serious: Yes (Other)
  Sender: FDA-Public Use
  Company Number: US-009507513-1301USA001837

PATIENT
  Age: 14 Year
  Sex: Female

DRUGS (5)
  1. SINGULAIR [Suspect]
     Dosage: 10 MG, QD
     Route: 048
  2. FLONASE [Suspect]
     Dosage: DAILY: INHALATION
     Route: 055
  3. ZYRTEC [Suspect]
     Route: 048
  4. CLARITIN [Concomitant]
  5. [THERAPY UNSPECIFIED] [Concomitant]

REACTIONS (5)
  - Sunburn [Unknown]
  - Burns third degree [Unknown]
  - Burns second degree [Unknown]
  - Burns first degree [Unknown]
  - Blister [Unknown]
